FAERS Safety Report 18944956 (Version 1)
Quarter: 2021Q1

REPORT INFORMATION
  Report Type: Spontaneous
  Country: US (occurrence: US)
  Receive Date: 20210226
  Receipt Date: 20210226
  Transmission Date: 20210420
  Serious: Yes (Other)
  Sender: FDA-Public Use
  Company Number: US-GLAXOSMITHKLINE-US2021GSK041849

PATIENT
  Sex: Male

DRUGS (4)
  1. ZANTAC [Suspect]
     Active Substance: RANITIDINE HYDROCHLORIDE
     Indication: GASTRIC ULCER
     Dosage: 75 MG, OCCASIONAL
     Route: 065
     Dates: start: 198101, end: 201601
  2. ZANTAC [Suspect]
     Active Substance: RANITIDINE HYDROCHLORIDE
     Indication: GASTRIC ULCER
     Dosage: 75 MG, OCCASIONAL
     Route: 065
     Dates: start: 198101, end: 201601
  3. ZANTAC [Suspect]
     Active Substance: RANITIDINE HYDROCHLORIDE
     Dosage: OTHER, OCCASIONAL
     Route: 065
     Dates: start: 198101, end: 201601
  4. ZANTAC [Suspect]
     Active Substance: RANITIDINE HYDROCHLORIDE
     Dosage: OTHER, OCCASIONAL
     Route: 065
     Dates: start: 198101, end: 201601

REACTIONS (1)
  - Colorectal cancer [Unknown]
